FAERS Safety Report 5329778-X (Version None)
Quarter: 2007Q2

REPORT INFORMATION
  Report Type: 
  Country: None (occurrence: None)
  Receive Date: 20070521
  Receipt Date: 20070509
  Transmission Date: 20071010
  Serious: Yes (Other)
  Sender: FDA-Public Use
  Company Number: US-AMGEN-US223784

PATIENT
  Sex: Female

DRUGS (4)
  1. ARANESP [Suspect]
     Indication: RENAL FAILURE CHRONIC
     Route: 065
     Dates: start: 20040101
  2. NORVASC [Concomitant]
     Route: 065
  3. ATENOLOL [Concomitant]
     Route: 065
  4. IRON [Concomitant]
     Route: 065
     Dates: end: 20060101

REACTIONS (3)
  - BLOOD PRESSURE INCREASED [None]
  - CARDIAC VALVE DISEASE [None]
  - EXTRASYSTOLES [None]
